FAERS Safety Report 5664239-X (Version None)
Quarter: 2008Q1

REPORT INFORMATION
  Report Type: 
  Country: None (occurrence: None)
  Receive Date: 20080314
  Receipt Date: 20080227
  Transmission Date: 20080703
  Serious: Yes (Other)
  Sender: FDA-Public Use
  Company Number: BR-BAYER-200812158LA

PATIENT
  Sex: Female

DRUGS (2)
  1. YASMIN [Suspect]
     Indication: DRUG USE FOR UNKNOWN INDICATION
     Route: 048
  2. DIANE 35 [Suspect]
     Indication: DRUG USE FOR UNKNOWN INDICATION
     Route: 048

REACTIONS (1)
  - BRAIN NEOPLASM [None]
